FAERS Safety Report 21142993 (Version 1)
Quarter: 2022Q3

REPORT INFORMATION
  Report Type: Spontaneous
  Country: JP (occurrence: JP)
  Receive Date: 20220728
  Receipt Date: 20220728
  Transmission Date: 20221026
  Serious: Yes (Hospitalization)
  Sender: FDA-Public Use
  Company Number: JP-ALLERGAN-2224698US

PATIENT
  Sex: Female

DRUGS (1)
  1. URSODIOL [Suspect]
     Active Substance: URSODIOL
     Indication: Product used for unknown indication
     Dosage: 100 MG
     Route: 048

REACTIONS (4)
  - Hepatic cancer [Unknown]
  - Haemorrhage [Unknown]
  - Dysphagia [Unknown]
  - Off label use [Unknown]
